FAERS Safety Report 6133727-4 (Version None)
Quarter: 2009Q1

REPORT INFORMATION
  Report Type: 
  Country: None (occurrence: None)
  Receive Date: 20090326
  Receipt Date: 20090320
  Transmission Date: 20090719
  Serious: Yes (Other)
  Sender: FDA-Public Use
  Company Number: B0566758A

PATIENT
  Age: 50 Year
  Sex: Male

DRUGS (7)
  1. TELZIR [Suspect]
     Indication: HIV INFECTION
     Route: 048
     Dates: start: 20050915, end: 20051028
  2. COMBIVIR [Suspect]
     Indication: HIV INFECTION
     Route: 048
  3. EPIVIR [Suspect]
     Indication: HIV INFECTION
     Route: 048
  4. NORVIR [Suspect]
     Indication: HIV INFECTION
     Route: 048
  5. VIDEX [Suspect]
     Indication: HIV INFECTION
     Route: 048
  6. VIREAD [Suspect]
     Indication: HIV INFECTION
     Route: 065
  7. SUSTIVA [Suspect]
     Indication: HIV INFECTION
     Route: 048

REACTIONS (2)
  - DRUG INTERACTION [None]
  - DRUG RASH WITH EOSINOPHILIA AND SYSTEMIC SYMPTOMS [None]
